FAERS Safety Report 17073288 (Version 2)
Quarter: 2020Q1

REPORT INFORMATION
  Report Type: Spontaneous
  Country: DE (occurrence: DE)
  Receive Date: 20191125
  Receipt Date: 20200107
  Transmission Date: 20200409
  Serious: Yes (Hospitalization, Other)
  Sender: FDA-Public Use
  Company Number: DE-AUROBINDO-AUR-APL-2019-074327

PATIENT
  Sex: Male
  Weight: 95 kg

DRUGS (3)
  1. COSENTYX [Suspect]
     Active Substance: SECUKINUMAB
     Indication: PSORIASIS
     Dosage: 300 MILLIGRAM, ONCE A MONTH
     Route: 058
     Dates: start: 20190326
  2. IBUPROFEN. [Suspect]
     Active Substance: IBUPROFEN
     Indication: PRODUCT USED FOR UNKNOWN INDICATION
     Dosage: UNK
     Route: 065
  3. LEVOTHYROXINE. [Concomitant]
     Active Substance: LEVOTHYROXINE
     Indication: HYPOTHYROIDISM
     Dosage: 25 MICROGRAM
     Route: 048
     Dates: start: 2017

REACTIONS (11)
  - Erysipelas [Recovered/Resolved]
  - Allergy to chemicals [Unknown]
  - Drug hypersensitivity [Unknown]
  - Pharyngitis [Unknown]
  - Sensitisation [Unknown]
  - C-reactive protein increased [Unknown]
  - Angioedema [Unknown]
  - Seasonal allergy [Recovered/Resolved]
  - Type IV hypersensitivity reaction [Unknown]
  - Conjunctivitis allergic [Recovered/Resolved]
  - Type I hypersensitivity [Recovered/Resolved]

NARRATIVE: CASE EVENT DATE: 20190603
